FAERS Safety Report 12428157 (Version 1)
Quarter: 2016Q2

REPORT INFORMATION
  Report Type: Spontaneous
  Country: GB (occurrence: GB)
  Receive Date: 20160602
  Receipt Date: 20160602
  Transmission Date: 20160815
  Serious: Yes (Other)
  Sender: FDA-Public Use
  Company Number: GB-ALVOGEN-2016-ALVOGEN-024814

PATIENT
  Sex: Female

DRUGS (1)
  1. DALACIN [Suspect]
     Active Substance: CLINDAMYCIN\CLINDAMYCIN PHOSPHATE
     Indication: DERMATITIS ACNEIFORM

REACTIONS (4)
  - Rash pustular [Unknown]
  - Pseudomonas test positive [Unknown]
  - Bacterial test positive [Unknown]
  - Rash [Unknown]
